FAERS Safety Report 7386300-4 (Version None)
Quarter: 2011Q1

REPORT INFORMATION
  Report Type: 
  Country: None (occurrence: None)
  Receive Date: 20110331
  Receipt Date: 20110317
  Transmission Date: 20110831
  Serious: Yes (Other)
  Sender: FDA-Public Use
  Company Number: PHHY2010US86663

PATIENT
  Age: 54 Year
  Sex: Male
  Weight: 93.4 kg

DRUGS (15)
  1. M.V.I. [Concomitant]
  2. ASPIRIN [Concomitant]
  3. TASIGNA [Suspect]
     Indication: CHRONIC MYELOID LEUKAEMIA
     Dosage: 200 MG, BID
     Route: 048
     Dates: start: 20100701
  4. METFORMIN HCL [Concomitant]
  5. CRESTOR [Concomitant]
  6. OXYCODONE [Concomitant]
  7. MORPHINE [Concomitant]
  8. LIDODERM [Concomitant]
  9. TRAZODONE [Concomitant]
  10. CELEXA [Concomitant]
  11. METOPROLOL - SLOW RELEASE [Concomitant]
  12. GABAPENTIN [Concomitant]
  13. NASONEX [Concomitant]
  14. XANAX [Concomitant]
  15. ZYRTEC [Concomitant]

REACTIONS (6)
  - DYSPNOEA [None]
  - WEIGHT INCREASED [None]
  - FATIGUE [None]
  - PAIN [None]
  - HAEMATOCHEZIA [None]
  - CONSTIPATION [None]
